FAERS Safety Report 16641399 (Version 1)
Quarter: 2019Q3

REPORT INFORMATION
  Report Type: Spontaneous
  Country: US (occurrence: US)
  Receive Date: 20190729
  Receipt Date: 20190729
  Transmission Date: 20191004
  Serious: No
  Sender: FDA-Public Use
  Company Number: US-009507513-1907USA005249

PATIENT
  Age: 31 Year
  Sex: Female

DRUGS (2)
  1. LIDOCAINE. [Suspect]
     Active Substance: LIDOCAINE
     Indication: LIGAMENT RUPTURE
     Dosage: 1 MILLILITER, ONCE
  2. CELESTONE SOLUSPAN [Suspect]
     Active Substance: BETAMETHASONE ACETATE\BETAMETHASONE SODIUM PHOSPHATE
     Indication: LIGAMENT RUPTURE
     Dosage: 6 MILLIGRAM, ONCE

REACTIONS (1)
  - Therapy partial responder [Unknown]
